FAERS Safety Report 8766939 (Version 4)
Quarter: 2013Q1

REPORT INFORMATION
  Report Type: Spontaneous
  Country: US (occurrence: US)
  Receive Date: 20120904
  Receipt Date: 20130103
  Transmission Date: 20140127
  Serious: Yes (Hospitalization, Other)
  Sender: FDA-Public Use
  Company Number: US-JNJFOC-20120813786

PATIENT
  Sex: Female

DRUGS (2)
  1. REMICADE [Suspect]
     Indication: URTICARIA CHRONIC
     Dosage: 5 MG/KG ONCE EVERY 6-8 WEEKS
     Route: 042
     Dates: start: 2006, end: 201207
  2. CYCLOSPORINE [Suspect]
     Indication: URTICARIA CHRONIC
     Route: 048
     Dates: start: 2011, end: 201207

REACTIONS (1)
  - Myocarditis [Recovered/Resolved]
